FAERS Safety Report 17042974 (Version 1)
Quarter: 2019Q4

REPORT INFORMATION
  Report Type: Spontaneous
  Country: US (occurrence: US)
  Receive Date: 20191017
  Receipt Date: 20191017
  Transmission Date: 20200122
  Serious: No
  Sender: FDA-Public Use
  Company Number: None

PATIENT
  Age: 41 Year
  Sex: Male

DRUGS (1)
  1. STELARA [Suspect]
     Active Substance: USTEKINUMAB
     Indication: PSORIATIC ARTHROPATHY
     Dosage: ?          OTHER DOSE:45MG/0.5ML;?
     Route: 058
     Dates: start: 201910

REACTIONS (2)
  - Wrong device used [None]
  - Device dispensing error [None]

NARRATIVE: CASE EVENT DATE: 20191015
